FAERS Safety Report 9192874 (Version 1)
Quarter: 2013Q1

REPORT INFORMATION
  Report Type: Spontaneous
  Country: US (occurrence: None)
  Receive Date: 20120703
  Receipt Date: 20120703
  Transmission Date: 20140127
  Serious: No
  Sender: FDA-Public Use
  Company Number: PHEH2012US007804

PATIENT
  Sex: Female
  Weight: 69.4 kg

DRUGS (10)
  1. GILENYA (FTY) CAPSULE, 0.5MG [Suspect]
     Dosage: 1 DF, QD , ORAL
     Route: 048
  2. VERAPAMIL (VERAPAMIL) [Concomitant]
  3. SYNTHROID (LEVOTHYROXINE SODIUM) [Concomitant]
  4. OXYCONTIN (OXYCODONE HYDROCHLORIDE) [Concomitant]
  5. AMITRIPTYLINE (AMITRIPYLINE) TABLET [Concomitant]
  6. ZANAFLEX (TIZANITIDINE HYDROCHLORIDE) [Concomitant]
  7. ZANAFLEX (TIZANIDINE HYDROCHLORIDE) [Concomitant]
  8. NEXIUM (ESOMEPRAZOLE MAGNESSIUM) [Concomitant]
  9. GABAPENTIN (GABAPENTIN) [Concomitant]
  10. FENTANYL (FENTANYL) [Concomitant]

REACTIONS (2)
  - Hypertension [None]
  - Drug ineffective [None]
